FAERS Safety Report 8202591-1 (Version None)
Quarter: 2012Q1

REPORT INFORMATION
  Report Type: 
  Country: None (occurrence: None)
  Receive Date: 20120312
  Receipt Date: 20120309
  Transmission Date: 20120608
  Serious: No
  Sender: FDA-Public Use
  Company Number: US-BAYER-2012-023890

PATIENT
  Age: 40 Year
  Sex: Female
  Weight: 97.506 kg

DRUGS (2)
  1. MAGNEVIST [Suspect]
     Indication: NUCLEAR MAGNETIC RESONANCE IMAGING
     Dosage: 22 ML, ONCE RIGHT ANTECUBITAL
     Route: 042
     Dates: start: 20120309, end: 20120309
  2. ANTIHYPERTENSIVES [Concomitant]

REACTIONS (4)
  - PRURITUS [None]
  - URTICARIA [None]
  - NAUSEA [None]
  - MALAISE [None]
